FAERS Safety Report 15552769 (Version 1)
Quarter: 2018Q4

REPORT INFORMATION
  Report Type: Spontaneous
  Country: None (occurrence: AT)
  Receive Date: 20181025
  Receipt Date: 20181025
  Transmission Date: 20190205
  Serious: Yes (Other)
  Sender: FDA-Public Use
  Company Number: AT-LABORATOIRE HRA PHARMA-2058007

PATIENT
  Age: 50 Year
  Sex: Male
  Weight: 67 kg

DRUGS (9)
  1. DOXAZOSIN [Concomitant]
     Active Substance: DOXAZOSIN\DOXAZOSIN MESYLATE
     Dates: start: 20180516, end: 20180704
  2. IRBESARTAN. [Concomitant]
     Active Substance: IRBESARTAN
  3. CARVEDILOL. [Concomitant]
     Active Substance: CARVEDILOL
     Dates: start: 20180516, end: 20180911
  4. HYDROCORTISONE. [Concomitant]
     Active Substance: HYDROCORTISONE
  5. IRBESARTAN AND HYDROCHLOROTHIAZIDE [Concomitant]
     Active Substance: HYDROCHLOROTHIAZIDE\IRBESARTAN
  6. LYSODREN [Suspect]
     Active Substance: MITOTANE
     Indication: ADJUVANT THERAPY
  7. VITAMIN B [Concomitant]
     Active Substance: VITAMIN B
     Dates: start: 20181017
  8. LEVOCARNITINE. [Concomitant]
     Active Substance: LEVOCARNITINE
  9. PANTOPRAZOLE [Concomitant]
     Active Substance: PANTOPRAZOLE
     Dates: start: 20180403

REACTIONS (12)
  - Adrenal insufficiency [Recovering/Resolving]
  - Fatigue [Recovering/Resolving]
  - Feeling hot [Recovering/Resolving]
  - Dyslipidaemia [Recovering/Resolving]
  - Dysgeusia [Recovering/Resolving]
  - Blood pressure inadequately controlled [Unknown]
  - Peripheral coldness [Recovering/Resolving]
  - Chills [Recovering/Resolving]
  - Weight decreased [Recovering/Resolving]
  - Off label use [None]
  - Blood count abnormal [Recovering/Resolving]
  - Gastrointestinal disorder [Recovering/Resolving]
